FAERS Safety Report 7672278-2 (Version None)
Quarter: 2011Q3

REPORT INFORMATION
  Report Type: 
  Country: None (occurrence: None)
  Receive Date: 20110809
  Receipt Date: 20110803
  Transmission Date: 20111222
  Serious: Yes (Death, Disabling)
  Sender: FDA-Public Use
  Company Number: JP-JNJFOC-20091100262

PATIENT
  Sex: Female
  Weight: 60 kg

DRUGS (23)
  1. PICIBANIL [Concomitant]
     Route: 065
  2. MINOCYCLINE HCL [Concomitant]
     Route: 065
  3. NAPROXEN [Concomitant]
     Route: 048
     Dates: start: 20090824, end: 20091027
  4. DECADRON [Concomitant]
     Route: 042
     Dates: start: 20000930, end: 20090930
  5. FAMOTIDINE [Concomitant]
     Indication: PROPHYLAXIS
     Route: 042
     Dates: start: 20090930, end: 20090930
  6. ATARAX [Concomitant]
     Route: 042
     Dates: start: 20091026, end: 20091029
  7. DOXORUBICIN HCL [Suspect]
     Dosage: CYCLE 1
     Route: 042
     Dates: start: 20090731, end: 20090731
  8. ACTOS [Concomitant]
     Route: 048
  9. DECADRON [Concomitant]
     Indication: PROPHYLAXIS
     Route: 048
     Dates: start: 20091007, end: 20091027
  10. OXYGEN [Concomitant]
     Route: 065
  11. KAMAG G [Concomitant]
     Indication: PROPHYLAXIS
     Route: 048
     Dates: start: 20090803, end: 20091027
  12. MUCOSOLVAN [Concomitant]
     Route: 048
     Dates: start: 20091025
  13. AMARYL [Concomitant]
     Route: 048
  14. DOXORUBICIN HCL [Suspect]
     Dosage: CYCLE 2
     Route: 042
     Dates: start: 20090830, end: 20090830
  15. DECADRON [Concomitant]
     Route: 048
     Dates: start: 20090731
  16. DOXORUBICIN HCL [Suspect]
     Indication: OVARIAN CANCER RECURRENT
     Dosage: CYCLE 3
     Route: 042
     Dates: start: 20090930, end: 20090930
  17. LIPITOR [Concomitant]
     Route: 048
  18. MS CONTIN [Concomitant]
     Route: 048
     Dates: start: 20090803, end: 20090805
  19. MS CONTIN [Concomitant]
     Route: 048
     Dates: start: 20090806
  20. PROCHLORPERAZINE [Concomitant]
     Indication: PROPHYLAXIS
     Route: 048
     Dates: start: 20090803, end: 20091027
  21. SEROTONE [Concomitant]
     Indication: PROPHYLAXIS
     Route: 042
     Dates: start: 20090930, end: 20090930
  22. MUCOSTA [Concomitant]
     Indication: PROPHYLAXIS
     Route: 048
     Dates: start: 20091007, end: 20091027
  23. CEFMETAZON [Concomitant]
     Indication: PROPHYLAXIS
     Route: 042
     Dates: start: 20091024, end: 20091026

REACTIONS (2)
  - OVARIAN CANCER RECURRENT [None]
  - RESPIRATORY DISORDER [None]
